FAERS Safety Report 12810552 (Version 4)
Quarter: 2017Q1

REPORT INFORMATION
  Report Type: Spontaneous
  Country: GB (occurrence: GB)
  Receive Date: 20161005
  Receipt Date: 20170318
  Transmission Date: 20170428
  Serious: Yes (Other)
  Sender: FDA-Public Use
  Company Number: GB-ROCHE-1661221

PATIENT
  Age: 37 Year
  Sex: Female
  Weight: 74 kg

DRUGS (8)
  1. KADCYLA [Suspect]
     Active Substance: ADO-TRASTUZUMAB EMTANSINE
     Indication: BREAST CANCER METASTATIC
     Dosage: DOSE- 260 MG IN 250 ML OF SALINE
     Route: 042
     Dates: start: 201411, end: 201507
  2. KADCYLA [Suspect]
     Active Substance: ADO-TRASTUZUMAB EMTANSINE
     Route: 042
     Dates: start: 20140416
  3. DALTEPARIN [Suspect]
     Active Substance: DALTEPARIN
     Indication: PRODUCT USED FOR UNKNOWN INDICATION
     Route: 065
  4. AMITRIPTYLINE [Concomitant]
     Active Substance: AMITRIPTYLINE
     Route: 048
  5. KADCYLA [Suspect]
     Active Substance: ADO-TRASTUZUMAB EMTANSINE
     Dosage: DOSE- 260 MG IN 250 ML OF SALINE
     Route: 042
     Dates: start: 201602
  6. DIAZEPAM. [Concomitant]
     Active Substance: DIAZEPAM
     Route: 065
  7. VENLAFAXINE [Concomitant]
     Active Substance: VENLAFAXINE HYDROCHLORIDE
     Route: 048
  8. FERROUS SULFATE. [Concomitant]
     Active Substance: FERROUS SULFATE
     Route: 048

REACTIONS (4)
  - Maternal exposure during pregnancy [Unknown]
  - Vaginal haemorrhage [Unknown]
  - Amniorrhoea [Unknown]
  - Premature delivery [Unknown]

NARRATIVE: CASE EVENT DATE: 20150717
